FAERS Safety Report 10669940 (Version 2)
Quarter: 2014Q4

REPORT INFORMATION
  Report Type: Report from Study
  Country: NL (occurrence: NL)
  Receive Date: 20141223
  Receipt Date: 20141223
  Transmission Date: 20150529
  Serious: Yes (Hospitalization)
  Sender: FDA-Public Use
  Company Number: NL-ABBVIE-14K-114-1221752-00

PATIENT
  Age: 40 Year
  Sex: Female
  Weight: 72 kg

DRUGS (5)
  1. LUCRIN [Suspect]
     Active Substance: LEUPROLIDE ACETATE
     Route: 030
     Dates: start: 20140916, end: 20140916
  2. LUCRIN [Suspect]
     Active Substance: LEUPROLIDE ACETATE
     Indication: PRODUCT USED FOR UNKNOWN INDICATION
     Route: 030
     Dates: start: 20140620, end: 20140620
  3. MIRENA [Concomitant]
     Active Substance: LEVONORGESTREL
     Indication: BREAST DISORDER
     Dosage: CONTINUOUS
     Route: 067
     Dates: start: 2008
  4. LUCRIN [Suspect]
     Active Substance: LEUPROLIDE ACETATE
     Indication: BREAST DISORDER
     Route: 058
     Dates: start: 20140314, end: 20140314
  5. LIVIAL [Concomitant]
     Active Substance: TIBOLONE
     Indication: OSTEOPOROSIS PROPHYLAXIS
     Route: 048
     Dates: start: 20140627

REACTIONS (12)
  - Faeces discoloured [Recovered/Resolved]
  - Metrorrhagia [Recovered/Resolved]
  - Injection site inflammation [Recovered/Resolved]
  - Injection site inflammation [Recovered/Resolved]
  - Headache [Recovered/Resolved]
  - Insomnia [Not Recovered/Not Resolved]
  - Hot flush [Not Recovered/Not Resolved]
  - Constipation [Not Recovered/Not Resolved]
  - Abdominal distension [Not Recovered/Not Resolved]
  - Oophorectomy [Recovering/Resolving]
  - Injection site mass [Unknown]
  - Skin reaction [Recovered/Resolved]

NARRATIVE: CASE EVENT DATE: 20140314
